FAERS Safety Report 12391057 (Version 1)
Quarter: 2016Q2

REPORT INFORMATION
  Report Type: Spontaneous
  Country: GB (occurrence: GB)
  Receive Date: 20160520
  Receipt Date: 20160520
  Transmission Date: 20160815
  Serious: Yes (Death, Other)
  Sender: FDA-Public Use
  Company Number: GB-ASTRAZENECA-2016SE51937

PATIENT
  Age: 49 Year
  Sex: Female
  Weight: 71 kg

DRUGS (8)
  1. DULOXETINE. [Concomitant]
     Active Substance: DULOXETINE
  2. ATORVASTATIN [Concomitant]
     Active Substance: ATORVASTATIN
  3. DICLOFENAC [Concomitant]
     Active Substance: DICLOFENAC
  4. LISINOPRIL. [Concomitant]
     Active Substance: LISINOPRIL
  5. PREGABALIN. [Concomitant]
     Active Substance: PREGABALIN
  6. APIDRA [Concomitant]
     Active Substance: INSULIN GLULISINE
  7. LANTUS [Concomitant]
     Active Substance: INSULIN GLARGINE
  8. DAPAGLIFLOZIN [Suspect]
     Active Substance: DAPAGLIFLOZIN
     Indication: INSULIN-REQUIRING TYPE 2 DIABETES MELLITUS
     Route: 048
     Dates: start: 201508, end: 20160205

REACTIONS (2)
  - Pneumonia fungal [Fatal]
  - Diabetic ketoacidosis [Unknown]

NARRATIVE: CASE EVENT DATE: 201601
